FAERS Safety Report 4693210-X (Version None)
Quarter: 2005Q2

REPORT INFORMATION
  Report Type: 
  Country: None (occurrence: None)
  Receive Date: 20050615
  Receipt Date: 20050602
  Transmission Date: 20051028
  Serious: Yes (Hospitalization)
  Sender: FDA-Public Use
  Company Number: 26728

PATIENT
  Age: 90 Year
  Sex: Female

DRUGS (10)
  1. FLECAINIDE ACETATE [Suspect]
     Indication: ARRHYTHMIA
     Dosage: 200 MG (100 MG,2 IN 1 DAY(S)),ORAL
     Route: 048
     Dates: start: 20041215, end: 20050323
  2. INDAPAMIDE [Concomitant]
  3. XANAX [Concomitant]
  4. ASPEGIC 1000 [Concomitant]
  5. FONZYLANE (BUFLOMEDIL HYDROCHLORIDE) [Concomitant]
  6. ACETAMINOPHEN [Concomitant]
  7. FORLAX (MACROGOL) [Concomitant]
  8. ATARAX [Concomitant]
  9. SMECTA (SMECTITE) [Concomitant]
  10. NOROXINE (NORFLOXACINE) [Concomitant]

REACTIONS (10)
  - ACCIDENTAL OVERDOSE [None]
  - ATRIOVENTRICULAR BLOCK COMPLETE [None]
  - BRADYCARDIA [None]
  - CARDIAC FAILURE [None]
  - CYTOLYTIC HEPATITIS [None]
  - FALL [None]
  - NAUSEA [None]
  - RENAL FAILURE [None]
  - SINUS ARREST [None]
  - VOMITING [None]
